FAERS Safety Report 5944349-X (Version None)
Quarter: 2008Q4

REPORT INFORMATION
  Report Type: 
  Country: None (occurrence: None)
  Receive Date: 20081105
  Receipt Date: 20081022
  Transmission Date: 20090506
  Serious: Yes (Hospitalization, Other)
  Sender: FDA-Public Use
  Company Number: 2008US000357

PATIENT
  Age: 61 Year
  Sex: Female

DRUGS (8)
  1. PROGRAF [Suspect]
     Indication: HEART TRANSPLANT
     Dosage: ORAL
     Route: 048
     Dates: start: 20040721, end: 20080201
  2. NEORAL [Concomitant]
  3. IMURAN [Concomitant]
  4. CELLCEPT [Concomitant]
  5. METHOTREXATE [Concomitant]
  6. FOLIC ACID [Concomitant]
  7. EFFEXOR [Concomitant]
  8. CRESTOR [Concomitant]

REACTIONS (27)
  - ABDOMINAL PAIN [None]
  - ARRHYTHMIA [None]
  - ASTHMA [None]
  - AXILLARY VEIN THROMBOSIS [None]
  - CARDIOVASCULAR DISORDER [None]
  - CHEST PAIN [None]
  - CYTOMEGALOVIRUS INFECTION [None]
  - DEEP VEIN THROMBOSIS [None]
  - DEPRESSION [None]
  - DIABETES MELLITUS [None]
  - DRUG LEVEL FLUCTUATING [None]
  - DRUG LEVEL INCREASED [None]
  - DRUG TOXICITY [None]
  - DYSPEPSIA [None]
  - DYSPNOEA [None]
  - EOSINOPHILIA [None]
  - EPSTEIN-BARR VIRUS INFECTION [None]
  - GASTRITIS [None]
  - HEART TRANSPLANT REJECTION [None]
  - HYPERLIPIDAEMIA [None]
  - HYPERTENSION [None]
  - IMPAIRED GASTRIC EMPTYING [None]
  - LEFT VENTRICULAR DYSFUNCTION [None]
  - PULMONARY EMBOLISM [None]
  - SLEEP APNOEA SYNDROME [None]
  - SYPHILIS TEST POSITIVE [None]
  - THROMBOSIS [None]
